FAERS Safety Report 8915877 (Version 1)
Quarter: 2012Q4

REPORT INFORMATION
  Report Type: 
  Country: SE (occurrence: SE)
  Receive Date: 20121119
  Receipt Date: 20121119
  Transmission Date: 20130627
  Serious: Yes (Hospitalization)
  Sender: FDA-Public Use
  Company Number: SE-PFIZER INC-2012286210

PATIENT
  Age: 36 Year
  Sex: Male
  Weight: 67 kg

DRUGS (5)
  1. GENOTROPIN [Suspect]
     Dosage: 1.0 mg, 1x/day,7 injections/week
     Route: 058
     Dates: start: 19970930
  2. LEVAXIN [Concomitant]
     Indication: THYROID DISORDER
     Dosage: UNK
     Dates: start: 19920201
  3. LEVAXIN [Concomitant]
     Indication: PRIMARY HYPOTHYROIDISM
  4. ASACOL [Concomitant]
     Indication: GASTROINTESTINAL DISORDER
     Dosage: UNK
     Dates: start: 20010430
  5. ASACOL [Concomitant]
     Indication: PERITONEAL DISORDER

REACTIONS (1)
  - Gastric disorder [Unknown]
